FAERS Safety Report 5974327-6 (Version None)
Quarter: 2008Q4

REPORT INFORMATION
  Report Type: 
  Country: None (occurrence: None)
  Receive Date: 20081128
  Receipt Date: 20081117
  Transmission Date: 20090506
  Serious: No
  Sender: FDA-Public Use
  Company Number: 2008-03276

PATIENT
  Age: 54 Year
  Sex: Male
  Weight: 56.6 kg

DRUGS (9)
  1. VELCADE [Suspect]
     Indication: MULTIPLE MYELOMA
     Dosage: 1.3 MG/M2, INTRAVENOUS
     Route: 042
     Dates: start: 20030402, end: 20030411
  2. THALIDOMIDE [Suspect]
     Indication: MULTIPLE MYELOMA
  3. DEXAMETHASONE TAB [Suspect]
     Indication: MULTIPLE MYELOMA
  4. REMERON [Concomitant]
  5. NEURONTIN [Concomitant]
  6. ACYCLOVIR [Concomitant]
  7. ATIVAN [Concomitant]
  8. COLACE (DOCUSATE SODIUM) [Concomitant]
  9. LOMOTIL [Concomitant]

REACTIONS (1)
  - HYPOPHOSPHATAEMIA [None]
